FAERS Safety Report 19269178 (Version 5)
Quarter: 2022Q2

REPORT INFORMATION
  Report Type: Report from Study
  Country: CN (occurrence: CN)
  Receive Date: 20210517
  Receipt Date: 20220520
  Transmission Date: 20220721
  Serious: Yes (Death, Life-Threatening, Hospitalization, Other)
  Sender: FDA-Public Use
  Company Number: CN-GILEAD-2021-0529430

PATIENT
  Age: 50 Year
  Sex: Female
  Weight: 65 kg

DRUGS (10)
  1. SACITUZUMAB GOVITECAN [Suspect]
     Active Substance: SACITUZUMAB GOVITECAN
     Indication: Triple negative breast cancer
     Dosage: 10 MG/KG, DAYS 1 AND 8 OF A 21 DAY CYCLE
     Route: 042
  2. SHENG XUE BAO [Concomitant]
     Indication: Anaemia
     Dosage: UNK
     Dates: start: 20210209, end: 20210327
  3. QI JIAO SHENG BAI [Concomitant]
     Indication: Neutrophil count decreased
     Dosage: UNK
     Dates: start: 20210209
  4. COENZYME Q10 [Concomitant]
     Active Substance: DIETARY SUPPLEMENT\UBIDECARENONE
     Indication: Prophylaxis
     Dosage: 10 MG, PER SINGLE DOSE, TID
     Route: 048
     Dates: start: 2020, end: 20210327
  5. COENZYME Q10 [Concomitant]
     Active Substance: DIETARY SUPPLEMENT\UBIDECARENONE
     Dosage: 5 MG, ONCE
     Route: 030
     Dates: start: 20210304, end: 20210304
  6. PROMETHAZINE HYDROCHLORIDE [Concomitant]
     Active Substance: PROMETHAZINE HYDROCHLORIDE
     Indication: Chemotherapy side effect prophylaxis
     Dosage: 25 MG; ONCE
     Route: 030
     Dates: start: 20210304, end: 20210304
  7. DEXAMETHASONE ACETATE [Concomitant]
     Active Substance: DEXAMETHASONE ACETATE
     Indication: Chemotherapy side effect prophylaxis
     Dosage: 5 MG; ONCE
     Route: 041
     Dates: start: 20210304, end: 20210304
  8. ACETAMINOPHEN [Concomitant]
     Active Substance: ACETAMINOPHEN
     Indication: Chemotherapy side effect prophylaxis
     Dosage: 0.65 G, ONCE
     Route: 048
     Dates: start: 20210304, end: 20210304
  9. FAMOTIDINE [Concomitant]
     Active Substance: FAMOTIDINE
     Indication: Chemotherapy side effect prophylaxis
     Dosage: 20 MG, ONCE
     Route: 041
     Dates: start: 20210304, end: 20210304
  10. PALONOSETRON HYDROCHLORIDE [Concomitant]
     Active Substance: PALONOSETRON HYDROCHLORIDE
     Indication: Chemotherapy side effect prophylaxis
     Dosage: 0.25 MG, ONCE
     Route: 041
     Dates: start: 20210304, end: 20210304

REACTIONS (6)
  - Shock [Fatal]
  - Shock [Fatal]
  - Platelet count decreased [Not Recovered/Not Resolved]
  - White blood cell count decreased [Not Recovered/Not Resolved]
  - Neutrophil count decreased [Not Recovered/Not Resolved]
  - Diarrhoea [Recovered/Resolved]

NARRATIVE: CASE EVENT DATE: 20210320
